FAERS Safety Report 4694263-5 (Version None)
Quarter: 2005Q2

REPORT INFORMATION
  Report Type: 
  Country: None (occurrence: None)
  Receive Date: 20050620
  Receipt Date: 20050616
  Transmission Date: 20051028
  Serious: Yes (Death)
  Sender: FDA-Public Use
  Company Number: JP-BOEHRINGER INGELHEIM PHARMACEUTICALS, INC.-2005-BP-10210NB

PATIENT
  Age: 96 Year
  Sex: Female

DRUGS (7)
  1. MICARDIS [Suspect]
     Indication: HYPERTENSION
     Route: 048
  2. DEPROMEL [Concomitant]
     Route: 048
  3. HORIZON [Concomitant]
     Route: 048
  4. CEROCRAL [Concomitant]
     Route: 048
  5. JUVELA N [Concomitant]
     Route: 048
  6. LAC B [Concomitant]
     Route: 048
  7. RHYTHMY [Concomitant]
     Route: 048

REACTIONS (1)
  - DEATH [None]
